FAERS Safety Report 8430439-9 (Version None)
Quarter: 2012Q2

REPORT INFORMATION
  Report Type: 
  Country: None (occurrence: None)
  Receive Date: 20120612
  Receipt Date: 20120601
  Transmission Date: 20120825
  Serious: Yes (Hospitalization, Other)
  Sender: FDA-Public Use
  Company Number: US-ACTELION-A-US2011-54782

PATIENT

DRUGS (1)
  1. TRACLEER [Suspect]
     Indication: PULMONARY ARTERIAL HYPERTENSION
     Dosage: UNK MG, UNK
     Route: 048
     Dates: start: 20051214

REACTIONS (13)
  - ABNORMAL LOSS OF WEIGHT [None]
  - RENAL FAILURE [None]
  - BALANCE DISORDER [None]
  - PERIORBITAL HAEMATOMA [None]
  - PNEUMONIA [None]
  - DIABETIC COMA [None]
  - HAEMORRHAGE [None]
  - CARDIAC PACEMAKER INSERTION [None]
  - DEMENTIA [None]
  - FALL [None]
  - MASS [None]
  - ABASIA [None]
  - LOSS OF CONSCIOUSNESS [None]
